FAERS Safety Report 23956042 (Version 14)
Quarter: 2025Q1

REPORT INFORMATION
  Report Type: Report from Study
  Country: CO (occurrence: CO)
  Receive Date: 20240610
  Receipt Date: 20250318
  Transmission Date: 20250409
  Serious: Yes (Hospitalization, Other)
  Sender: ROCHE
  Company Number: CO-002147023-NVSC2024CO107502

PATIENT
  Age: 12 Year
  Sex: Male
  Weight: 41.0 kg

DRUGS (22)
  1. XOLAIR [Suspect]
     Active Substance: OMALIZUMAB
     Indication: Asthma
     Dosage: 300 MG, QMO
     Route: 058
     Dates: start: 20170101
  2. XOLAIR [Suspect]
     Active Substance: OMALIZUMAB
     Route: 058
     Dates: start: 2017
  3. XOLAIR [Suspect]
     Active Substance: OMALIZUMAB
     Dosage: 450 MG, QMO (APR)
     Route: 058
     Dates: start: 202405
  4. XOLAIR [Suspect]
     Active Substance: OMALIZUMAB
     Dosage: 450 MG, QMO
     Route: 058
     Dates: start: 20240524
  5. XOLAIR [Suspect]
     Active Substance: OMALIZUMAB
     Dosage: 450 MG, QMO
     Route: 058
     Dates: start: 20240622
  6. XOLAIR [Suspect]
     Active Substance: OMALIZUMAB
     Dosage: 450 MG, QMO
     Route: 058
     Dates: start: 20240702
  7. XOLAIR [Suspect]
     Active Substance: OMALIZUMAB
     Dosage: 450 MG, QMO (APR)
     Route: 058
     Dates: start: 20240802
  8. XOLAIR [Suspect]
     Active Substance: OMALIZUMAB
     Route: 058
     Dates: start: 20240809
  9. XOLAIR [Suspect]
     Active Substance: OMALIZUMAB
     Route: 058
     Dates: start: 202409
  10. XOLAIR [Suspect]
     Active Substance: OMALIZUMAB
     Route: 058
     Dates: start: 20241004
  11. XOLAIR [Suspect]
     Active Substance: OMALIZUMAB
     Route: 065
     Dates: start: 20241113
  12. XOLAIR [Suspect]
     Active Substance: OMALIZUMAB
     Route: 058
  13. XOLAIR [Suspect]
     Active Substance: OMALIZUMAB
     Route: 065
  14. XOLAIR [Suspect]
     Active Substance: OMALIZUMAB
     Dosage: 450 MG, QMO (APR)
     Route: 058
  15. XOLAIR [Suspect]
     Active Substance: OMALIZUMAB
     Route: 058
  16. ALBUTEROL [Concomitant]
     Active Substance: ALBUTEROL
     Indication: Product used for unknown indication
     Route: 065
  17. IPRATROPIUM BROMIDE [Concomitant]
     Active Substance: IPRATROPIUM BROMIDE
     Indication: Product used for unknown indication
     Route: 065
  18. MONTELUKAST [Concomitant]
     Active Substance: MONTELUKAST
     Indication: Product used for unknown indication
     Route: 065
  19. FLUTICASONE [Concomitant]
     Active Substance: FLUTICASONE
     Indication: Product used for unknown indication
     Dosage: 2 DOSAGE FORM (PUFFS) BID (MORNING AND NIGHT)
     Route: 065
  20. PREDNISOLONE [Concomitant]
     Active Substance: PREDNISOLONE
     Indication: Product used for unknown indication
  21. NAPROXEN [Concomitant]
     Active Substance: NAPROXEN
     Route: 065
  22. BUDESONIDE [Concomitant]
     Active Substance: BUDESONIDE
     Indication: Product used for unknown indication
     Route: 065

REACTIONS (63)
  - Oxygen saturation decreased [Recovered/Resolved]
  - Pneumonia viral [Recovered/Resolved]
  - Malaise [Recovered/Resolved]
  - Pyrexia [Recovered/Resolved]
  - COVID-19 [Recovered/Resolved]
  - Pain [Unknown]
  - Pain [Recovered/Resolved]
  - Syncope [Unknown]
  - Nipple swelling [Not Recovered/Not Resolved]
  - Pneumonia [Unknown]
  - Asthmatic crisis [Recovered/Resolved]
  - Somnolence [Recovering/Resolving]
  - Underweight [Unknown]
  - Nipple pain [Not Recovered/Not Resolved]
  - Hormone level abnormal [Not Recovered/Not Resolved]
  - Ear infection [Unknown]
  - Pharyngitis [Unknown]
  - Dyspnoea [Unknown]
  - Cerebellar artery occlusion [Unknown]
  - Application site pain [Unknown]
  - Feeling abnormal [Unknown]
  - Crying [Unknown]
  - Fatigue [Unknown]
  - Influenza [Unknown]
  - Pallor [Unknown]
  - Hyperhidrosis [Unknown]
  - Injection site pain [Unknown]
  - Vomiting [Recovered/Resolved]
  - Headache [Recovered/Resolved]
  - Synovial cyst [Recovered/Resolved]
  - Inflammatory pain [Not Recovered/Not Resolved]
  - Nipple inflammation [Recovered/Resolved]
  - Infection [Recovered/Resolved]
  - Stenosis [Unknown]
  - Dermatitis [Unknown]
  - Pruritus [Unknown]
  - Nausea [Recovered/Resolved]
  - Chills [Unknown]
  - Inflammation [Recovered/Resolved]
  - Blister [Recovered/Resolved]
  - Dry skin [Unknown]
  - Secretion discharge [Unknown]
  - Laryngitis [Unknown]
  - Breast inflammation [Not Recovered/Not Resolved]
  - Feeling hot [Unknown]
  - Dizziness [Unknown]
  - Ataxia [Unknown]
  - Tonsillitis [Unknown]
  - Decreased immune responsiveness [Unknown]
  - Nervous system disorder [Unknown]
  - Depressed mood [Recovering/Resolving]
  - Off label use [Unknown]
  - Hypoaesthesia [Unknown]
  - Rhinitis [Unknown]
  - Ill-defined disorder [Unknown]
  - Erythema [Unknown]
  - Gynaecomastia [Unknown]
  - Weight decreased [Unknown]
  - Inflammation [Unknown]
  - General physical health deterioration [Unknown]
  - Bradykinesia [Unknown]
  - Rash [Unknown]
  - Nasal congestion [Unknown]

NARRATIVE: CASE EVENT DATE: 20180101
